FAERS Safety Report 17803339 (Version 1)
Quarter: 2020Q2

REPORT INFORMATION
  Report Type: Spontaneous
  Country: US (occurrence: US)
  Receive Date: 20200519
  Receipt Date: 20200519
  Transmission Date: 20200714
  Serious: No
  Sender: FDA-Public Use
  Company Number: US-PFIZER INC-2020104286

PATIENT
  Age: 76 Year
  Sex: Female

DRUGS (1)
  1. PREMARIN [Suspect]
     Active Substance: ESTROGENS, CONJUGATED
     Dosage: 1 G, 2X/WEEK (QUANTITY FOR 90 DAYS: 3 TUBES)
     Route: 067

REACTIONS (3)
  - Product use issue [Unknown]
  - Off label use [Unknown]
  - Confusional state [Unknown]
